FAERS Safety Report 7274437-X (Version None)
Quarter: 2011Q1

REPORT INFORMATION
  Report Type: 
  Country: None (occurrence: None)
  Receive Date: 20110204
  Receipt Date: 20110201
  Transmission Date: 20110831
  Serious: No
  Sender: FDA-Public Use
  Company Number: US-PFIZER INC-2011023467

PATIENT
  Sex: Female
  Weight: 90.703 kg

DRUGS (4)
  1. ADVIL [Concomitant]
     Dosage: UNK
  2. ADVIL CONGESTION RELIEF [Suspect]
     Indication: NASOPHARYNGITIS
     Dosage: 10 MG, 3X/DAY
     Route: 048
     Dates: start: 20110129, end: 20110131
  3. ADVIL CONGESTION RELIEF [Suspect]
  4. ADVIL CONGESTION RELIEF [Suspect]
     Indication: NASAL CONGESTION

REACTIONS (1)
  - DRUG INEFFECTIVE [None]
